FAERS Safety Report 19691391 (Version 1)
Quarter: 2021Q3

REPORT INFORMATION
  Report Type: Report from Study
  Country: BE (occurrence: BE)
  Receive Date: 20210812
  Receipt Date: 20210812
  Transmission Date: 20211014
  Serious: Yes (Hospitalization)
  Sender: FDA-Public Use
  Company Number: BE-VER-202100005

PATIENT
  Age: 54 Year
  Sex: Male

DRUGS (4)
  1. BICALUTAMIDE. [Suspect]
     Active Substance: BICALUTAMIDE
     Indication: SALIVARY GLAND CANCER
     Dosage: 50 MG, 1X/ DAY
     Route: 048
     Dates: start: 20180704
  2. TRIPTORELIN PAMOATE [Suspect]
     Active Substance: TRIPTORELIN PAMOATE
     Indication: SALIVARY GLAND CANCER
     Dosage: 3.75 MG, EVERY 28 DAYS
     Route: 030
     Dates: start: 20180711
  3. PACLITAXEL. [Suspect]
     Active Substance: PACLITAXEL
     Indication: SALIVARY GLAND CANCER
     Dosage: 339 MG, EVERY 21 DAYS
     Route: 042
     Dates: start: 20170628, end: 20171011
  4. CARBOPLATIN. [Suspect]
     Active Substance: CARBOPLATIN
     Indication: SALIVARY GLAND CANCER
     Dosage: 600 MG, EVERY 21 DAYS
     Route: 042
     Dates: start: 20170628, end: 20171011

REACTIONS (1)
  - Retinal detachment [Recovered/Resolved]

NARRATIVE: CASE EVENT DATE: 20200717
